FAERS Safety Report 10815950 (Version 1)
Quarter: 2015Q1

REPORT INFORMATION
  Report Type: Report from Study
  Country: US (occurrence: US)
  Receive Date: 20150218
  Receipt Date: 20150218
  Transmission Date: 20150721
  Serious: No
  Sender: FDA-Public Use
  Company Number: US-ABBVIE-14K-163-1282557-00

PATIENT
  Sex: Female

DRUGS (3)
  1. HUMIRA [Suspect]
     Active Substance: ADALIMUMAB
     Indication: RHEUMATOID ARTHRITIS
     Dates: start: 201407
  2. STEROID [Suspect]
     Active Substance: UNSPECIFIED INGREDIENT
     Indication: SKIN WARM
  3. STEROID [Suspect]
     Active Substance: UNSPECIFIED INGREDIENT
     Indication: RASH PAPULAR
     Dates: start: 2014, end: 2014

REACTIONS (4)
  - Abdominal pain upper [Unknown]
  - Device issue [Unknown]
  - Skin warm [Unknown]
  - Rash papular [Unknown]

NARRATIVE: CASE EVENT DATE: 2014
